FAERS Safety Report 5348829-X (Version None)
Quarter: 2007Q2

REPORT INFORMATION
  Report Type: 
  Country: None (occurrence: None)
  Receive Date: 20070605
  Receipt Date: 20070525
  Transmission Date: 20071010
  Serious: Yes (Hospitalization, Congenital Anomaly, Other)
  Sender: FDA-Public Use
  Company Number: 2007US000943

PATIENT
  Sex: Male

DRUGS (5)
  1. AMEVIVE [Suspect]
     Indication: DRUG EXPOSURE DURING PREGNANCY
     Dosage: INTRAMUSCULAR
     Route: 030
     Dates: start: 20030916
  2. VASOTEC [Concomitant]
  3. NORVASC [Concomitant]
  4. HYDROCHLOROTHAIZIDE [Concomitant]
  5. BETAMETHASONE/NEOMYCIN [Concomitant]

REACTIONS (8)
  - BRADYCARDIA [None]
  - CARDIAC MURMUR [None]
  - DRUG EXPOSURE DURING PREGNANCY [None]
  - HYPOGLYCAEMIA [None]
  - INFANTILE APNOEIC ATTACK [None]
  - PREMATURE BABY [None]
  - RESPIRATORY DISTRESS [None]
  - SEPSIS [None]
